FAERS Safety Report 9602222 (Version 2)
Quarter: 2013Q4

REPORT INFORMATION
  Report Type: Spontaneous
  Country: US (occurrence: US)
  Receive Date: 20131007
  Receipt Date: 20131030
  Transmission Date: 20140711
  Serious: No
  Sender: FDA-Public Use
  Company Number: US-FRI-1000049386

PATIENT
  Age: 20 Year
  Sex: Female

DRUGS (1)
  1. LINZESS [Suspect]
     Indication: IRRITABLE BOWEL SYNDROME
     Dosage: 290 MCG DAILY
     Dates: start: 20130917, end: 20131007

REACTIONS (4)
  - Rectal haemorrhage [Unknown]
  - Nausea [Unknown]
  - Drug ineffective [Unknown]
  - Faeces hard [Unknown]
